FAERS Safety Report 16323390 (Version 1)
Quarter: 2019Q2

REPORT INFORMATION
  Report Type: Report from Study
  Country: BR (occurrence: BR)
  Receive Date: 20190517
  Receipt Date: 20190517
  Transmission Date: 20190711
  Serious: Yes (Other)
  Sender: FDA-Public Use
  Company Number: BR-SA-2019SA129556

PATIENT
  Age: 75 Year
  Sex: Male
  Weight: 94 kg

DRUGS (10)
  1. INSULIN GLARGINE [Suspect]
     Active Substance: INSULIN GLARGINE
     Indication: DIABETES MELLITUS
     Dosage: 42 IU IN THE MORNING, QD
     Route: 058
     Dates: start: 2014
  2. SIMVASTATIN. [Concomitant]
     Active Substance: SIMVASTATIN
     Indication: CARDIAC DISORDER
     Dosage: 1 DF AT NIGHT, QD
     Route: 048
     Dates: start: 2014
  3. GALVUSMET [Concomitant]
     Active Substance: METFORMIN HYDROCHLORIDE\VILDAGLIPTIN
     Indication: DIABETES MELLITUS
     Dosage: 1 TABLET, BID
     Route: 048
     Dates: start: 2014
  4. GANFORT [Concomitant]
     Active Substance: BIMATOPROST\TIMOLOL
     Indication: EYE DISORDER
     Dosage: 1 UNIT AT NIGHT, QD
     Route: 031
     Dates: start: 2015
  5. DESONIDE. [Concomitant]
     Active Substance: DESONIDE
     Indication: IMPAIRED HEALING
     Dosage: 1 UNIT IN THE MORNING AND AT NIGHT, BID
     Route: 061
     Dates: start: 2015
  6. OLMESARTAN [Concomitant]
     Active Substance: OLMESARTAN
     Indication: BLOOD PRESSURE MEASUREMENT
     Dosage: 1 DF A DAY IN THE MORNING, QD
     Route: 048
     Dates: start: 2016
  7. GLIBENCLAMIDE (MICRONIZED) [Concomitant]
     Indication: DIABETES MELLITUS
     Dosage: 1 DF A DAY AT LUNCH, QD
     Route: 048
     Dates: start: 2014
  8. AZOPT [Concomitant]
     Active Substance: BRINZOLAMIDE
     Indication: EYE DISORDER
     Dosage: 1 UIN THE MORNING AND AT NIGHT, BID
     Route: 048
     Dates: start: 2015
  9. AAS [Concomitant]
     Active Substance: ASPIRIN
     Indication: BLOOD DISORDER
     Dosage: 1 DF A DAY AT LUNCH, QD
     Route: 048
     Dates: start: 2015
  10. PANTOPRAZOLE 40 [Concomitant]
     Active Substance: PANTOPRAZOLE SODIUM
     Indication: GASTRIC DISORDER
     Dosage: 1 DF A DAY IN THE MORNING, QD
     Route: 048
     Dates: start: 2014

REACTIONS (6)
  - Skin exfoliation [Not Recovered/Not Resolved]
  - Glaucoma [Not Recovered/Not Resolved]
  - Skin discolouration [Not Recovered/Not Resolved]
  - Visual impairment [Not Recovered/Not Resolved]
  - Discharge [Not Recovered/Not Resolved]
  - Blindness [Not Recovered/Not Resolved]

NARRATIVE: CASE EVENT DATE: 2015
